FAERS Safety Report 8798612 (Version 1)
Quarter: 2012Q4

REPORT INFORMATION
  Report Type: Spontaneous
  Country: US (occurrence: None)
  Receive Date: 20120917
  Receipt Date: 20120917
  Transmission Date: 20130627
  Serious: Yes (Hospitalization)
  Sender: FDA-Public Use
  Company Number: None

PATIENT
  Age: 57 Year
  Sex: Female
  Weight: 105 kg

DRUGS (9)
  1. PANITUMUMAB [Suspect]
     Indication: OVARIAN CANCER
     Route: 042
  2. ATENOLOL [Concomitant]
  3. CHOLESTYRAMINE [Concomitant]
  4. CIMETIDINE [Concomitant]
  5. LOMOTIL [Concomitant]
  6. ATIVAN [Concomitant]
  7. GABAPENTIN [Concomitant]
  8. TRAMADOL [Concomitant]
  9. VICODIN [Concomitant]

REACTIONS (16)
  - White blood cell count increased [None]
  - Lactic acidosis [None]
  - Renal failure acute [None]
  - Hypernatraemia [None]
  - Hyperkalaemia [None]
  - Tachycardia [None]
  - Sepsis [None]
  - Deep vein thrombosis [None]
  - Nephrotic syndrome [None]
  - Skin ulcer [None]
  - Eschar [None]
  - Calciphylaxis [None]
  - Mental status changes [None]
  - Azotaemia [None]
  - Bundle branch block left [None]
  - Thrombocytopenia [None]
